FAERS Safety Report 4440072-1 (Version None)
Quarter: 2004Q3

REPORT INFORMATION
  Report Type: 
  Country: None (occurrence: None)
  Receive Date: 20040902
  Receipt Date: 20040820
  Transmission Date: 20050211
  Serious: Yes (Other)
  Sender: FDA-Public Use
  Company Number: JP-GLAXOSMITHKLINE-B0343699A

PATIENT
  Age: 54 Year
  Sex: Male

DRUGS (6)
  1. MODACIN [Suspect]
     Route: 065
     Dates: start: 20010410, end: 20010420
  2. MEROPENEM TRIHYDRATE [Suspect]
     Route: 065
     Dates: start: 20010410, end: 20010420
  3. MITOXANTRONE [Suspect]
     Route: 065
     Dates: start: 20010401, end: 20010410
  4. ETOPOSIDE [Suspect]
     Route: 065
     Dates: start: 20010401, end: 20010410
  5. VINDESINE SULFATE [Suspect]
     Route: 065
     Dates: start: 20010401, end: 20010410
  6. PREDNISOLONE [Suspect]
     Route: 065
     Dates: start: 20010401, end: 20010410

REACTIONS (3)
  - CLOSTRIDIUM COLITIS [None]
  - DIARRHOEA [None]
  - NOSOCOMIAL INFECTION [None]
